FAERS Safety Report 21419488 (Version 2)
Quarter: 2022Q4

REPORT INFORMATION
  Report Type: Report from Study
  Country: US (occurrence: US)
  Receive Date: 20221006
  Receipt Date: 20221108
  Transmission Date: 20230113
  Serious: Yes (Other)
  Sender: FDA-Public Use
  Company Number: US-BRISTOL-MYERS SQUIBB COMPANY-2022-112840

PATIENT
  Age: 75 Year
  Sex: Male
  Weight: 72.8 kg

DRUGS (26)
  1. REVLIMID [Suspect]
     Active Substance: LENALIDOMIDE
     Indication: Plasma cell myeloma
     Route: 048
     Dates: start: 20151120, end: 20160201
  2. REVLIMID [Suspect]
     Active Substance: LENALIDOMIDE
     Dosage: 21 DAYS ON, 7 DAYS OFF
     Route: 048
     Dates: start: 20160602, end: 20161012
  3. REVLIMID [Suspect]
     Active Substance: LENALIDOMIDE
     Dosage: 21 DAYS ON, 7 DAYS OFF
     Route: 048
     Dates: start: 20161013, end: 20210321
  4. DECADRON [Suspect]
     Active Substance: DEXAMETHASONE
     Indication: Plasma cell myeloma
     Dosage: DAY 1,2,4,5,8,9,11,12
     Route: 048
     Dates: start: 20151120, end: 20160201
  5. DECADRON [Suspect]
     Active Substance: DEXAMETHASONE
     Dosage: DAY 1,2,8,9,15,16
     Route: 042
     Dates: start: 20160602, end: 20161012
  6. DECADRON [Suspect]
     Active Substance: DEXAMETHASONE
     Dosage: DAYS 1,2,15,16
     Route: 042
     Dates: start: 20161013, end: 20210321
  7. VELCADE [Suspect]
     Active Substance: BORTEZOMIB
     Indication: Plasma cell myeloma
     Dosage: DAY 1,4,8,11
     Route: 058
     Dates: start: 20151120, end: 20160201
  8. VELCADE [Suspect]
     Active Substance: BORTEZOMIB
     Dosage: 1 WEEK OFF
     Route: 058
     Dates: start: 20210406
  9. DARZALEX FASPRO [Suspect]
     Active Substance: DARATUMUMAB\HYALURONIDASE-FIHJ
     Indication: Plasma cell myeloma
     Route: 058
     Dates: start: 20210406
  10. DARZALEX FASPRO [Suspect]
     Active Substance: DARATUMUMAB\HYALURONIDASE-FIHJ
     Route: 058
     Dates: start: 20220406
  11. NINLARO [Suspect]
     Active Substance: IXAZOMIB CITRATE
     Indication: Product used for unknown indication
     Dosage: DAYS 1, 8 AND 15Q 28D
     Route: 048
     Dates: start: 20210406, end: 20220207
  12. NINLARO [Suspect]
     Active Substance: IXAZOMIB CITRATE
     Dosage: DAYS 1, 8 AND 15Q 28D
     Route: 048
     Dates: start: 20220208
  13. NINLARO [Suspect]
     Active Substance: IXAZOMIB CITRATE
     Dosage: DAYS 1, 8 AND 15Q 28D
     Route: 048
     Dates: start: 20210406, end: 20220207
  14. ALKERAN [Suspect]
     Active Substance: MELPHALAN
     Indication: Plasma cell myeloma
     Dosage: ONCE
     Route: 042
     Dates: start: 20160303, end: 20160303
  15. KYPROLIS [Suspect]
     Active Substance: CARFILZOMIB
     Indication: Plasma cell myeloma
     Dosage: DAY 1,2
     Route: 042
     Dates: start: 20160602, end: 20160603
  16. KYPROLIS [Suspect]
     Active Substance: CARFILZOMIB
     Dosage: DAY 8,9, 15, 16 CYCLE AND BEYOND
     Route: 042
     Dates: start: 20160609, end: 20161012
  17. KYPROLIS [Suspect]
     Active Substance: CARFILZOMIB
     Dosage: DAYS 1,2, 15 AND 16
     Route: 042
     Dates: start: 20161013, end: 20200501
  18. ALLOPURINOL [Concomitant]
     Active Substance: ALLOPURINOL
     Indication: Hyperlipidaemia
     Route: 048
     Dates: start: 20220608
  19. BRIMONIDINE TARTRATE;TIMOLOL [Concomitant]
     Indication: Product used for unknown indication
     Route: 047
     Dates: start: 20220823
  20. CARVEDILOL [Concomitant]
     Active Substance: CARVEDILOL
     Indication: Hypertension
     Dates: start: 20220510
  21. OMEPRAZOLE [Concomitant]
     Active Substance: OMEPRAZOLE
     Indication: Nausea
     Route: 048
     Dates: start: 20220823
  22. OMEPRAZOLE [Concomitant]
     Active Substance: OMEPRAZOLE
     Indication: Gastrooesophageal reflux disease
  23. ZOFRON [ONDANSETRON] [Concomitant]
     Indication: Nausea
     Route: 048
     Dates: start: 20220329
  24. FLOMAX [Concomitant]
     Active Substance: TAMSULOSIN HYDROCHLORIDE
     Indication: Urinary retention
     Route: 048
     Dates: start: 20220823
  25. TRAMADOL [Concomitant]
     Active Substance: TRAMADOL
     Indication: Neuralgia
     Route: 048
     Dates: start: 20211213
  26. VALACYCLOVIR [Concomitant]
     Active Substance: VALACYCLOVIR HYDROCHLORIDE
     Indication: Antiviral treatment
     Route: 048
     Dates: start: 20220518

REACTIONS (2)
  - Plasma cell myeloma [Unknown]
  - Off label use [Unknown]
